FAERS Safety Report 10227066 (Version 2)
Quarter: 2014Q3

REPORT INFORMATION
  Report Type: Spontaneous
  Country: US (occurrence: None)
  Receive Date: 20140606
  Receipt Date: 20140804
  Transmission Date: 20150326
  Serious: Yes (Hospitalization)
  Sender: FDA-Public Use
  Company Number: UTC-045870

PATIENT
  Age: 51 Year
  Sex: Male
  Weight: 108.9 kg

DRUGS (4)
  1. ADCIRCA (TADALAFIL) UNKNOWN [Concomitant]
  2. COUMADIN (WARFARIN SODIUM) UNKNOWN [Concomitant]
  3. LETAIRIS (AMBRISENTAN) UNKNOWN [Concomitant]
  4. TYVASO [Suspect]
     Active Substance: TREPROSTINIL
     Indication: COR PULMONALE CHRONIC
     Route: 055
     Dates: start: 20120628

REACTIONS (4)
  - Overdose [None]
  - Pneumonia [None]
  - Hypoxia [None]
  - Sedation [None]

NARRATIVE: CASE EVENT DATE: 20140215
